FAERS Safety Report 6241184-2 (Version None)
Quarter: 2009Q2

REPORT INFORMATION
  Report Type: 
  Country: None (occurrence: None)
  Receive Date: 20090619
  Receipt Date: 20090619
  Transmission Date: 20091009
  Serious: No
  Sender: FDA-Public Use
  Company Number: None

PATIENT
  Age: 50 Year
  Sex: Female
  Weight: 66.2252 kg

DRUGS (1)
  1. ZICAM GEL DON'T KNOW DON'T KNOW [Suspect]
     Indication: NASOPHARYNGITIS
     Dosage: AS LABELED 2 TIMES A DAY NASAL
     Route: 045
     Dates: start: 19991015, end: 19991017

REACTIONS (1)
  - HYPOSMIA [None]
